FAERS Safety Report 9108877 (Version 2)
Quarter: 2013Q1

REPORT INFORMATION
  Report Type: Report from Study
  Country: US (occurrence: US)
  Receive Date: 20130222
  Receipt Date: 20130326
  Transmission Date: 20140127
  Serious: No
  Sender: FDA-Public Use
  Company Number: US-VERTEX PHARMACEUTICALS INC.-2013-002485

PATIENT
  Age: 54 Year
  Sex: Male
  Weight: 95 kg

DRUGS (11)
  1. VX-950 (TELAPREVIR) [Suspect]
     Indication: HEPATITIS C
     Dosage: 750 MG, TID
     Route: 048
  2. RIBAPAK [Suspect]
     Indication: HEPATITIS C
     Dosage: 1200 MG, QD
     Route: 048
  3. PEGASYS [Suspect]
     Indication: HEPATITIS C
     Route: 058
  4. AZITHROMYCIN [Concomitant]
     Dosage: 250 MG, UNK
     Route: 048
  5. HYDROXY HCL [Concomitant]
     Dosage: 10 MG, UNK
     Route: 048
  6. FISH OIL [Concomitant]
  7. VITAMIN C [Concomitant]
     Dosage: 500 MG, UNK
  8. VITAMIN E [Concomitant]
     Dosage: 1000 IU, UNK
  9. VITAMIN D [Concomitant]
     Dosage: 1000 IU, UNK
  10. CALCIUM +D [Concomitant]
  11. VITAMIN B COMPLEX [Concomitant]

REACTIONS (7)
  - Bone disorder [Unknown]
  - Chills [Unknown]
  - Nasopharyngitis [Unknown]
  - Dry mouth [Unknown]
  - Rash [Unknown]
  - Pruritus generalised [Unknown]
  - Haemorrhoids [Unknown]
